FAERS Safety Report 24705842 (Version 3)
Quarter: 2025Q1

REPORT INFORMATION
  Report Type: Report from Study
  Country: DE (occurrence: DE)
  Receive Date: 20241206
  Receipt Date: 20250113
  Transmission Date: 20250408
  Serious: Yes (Hospitalization, Other)
  Sender: ALEXION PHARMACEUTICALS
  Company Number: DE-002147023-NVSC2024DE170278

PATIENT
  Weight: 60 kg

DRUGS (17)
  1. FULVESTRANT [Suspect]
     Active Substance: FULVESTRANT
     Indication: Hormone receptor positive HER2 negative breast cancer
     Dosage: 500 MG, Q4W, FREQUENCY: Q4WK
  2. FULVESTRANT [Suspect]
     Active Substance: FULVESTRANT
     Dosage: 500 MG, Q4W, FREQUENCY: Q4WK
  3. FULVESTRANT [Suspect]
     Active Substance: FULVESTRANT
     Dosage: 500 MG, Q4W, FREQUENCY: Q4WK
  4. KISQALI [Suspect]
     Active Substance: RIBOCICLIB
     Indication: Hormone receptor positive HER2 negative breast cancer
     Dosage: 600 MG, QD (SCHEMA 21 DAYS INTAKE, 7 DAYS PAUSE)
  5. KISQALI [Suspect]
     Active Substance: RIBOCICLIB
     Indication: Hormone receptor positive HER2 negative breast cancer
  6. AFINITOR [Suspect]
     Active Substance: EVEROLIMUS
     Indication: Breast cancer
     Dosage: 2.5 MG, QD
  7. AFINITOR [Suspect]
     Active Substance: EVEROLIMUS
     Dosage: 2.5 MG, QD
  8. LETROZOLE [Suspect]
     Active Substance: LETROZOLE
     Route: 065
  9. LETROZOLE [Suspect]
     Active Substance: LETROZOLE
     Indication: Product used for unknown indication
     Route: 065
  10. LETROZOLE [Suspect]
     Active Substance: LETROZOLE
     Route: 065
  11. LETROZOLE [Suspect]
     Active Substance: LETROZOLE
     Route: 065
  12. LETROZOLE [Suspect]
     Active Substance: LETROZOLE
     Route: 065
  13. LETROZOLE [Suspect]
     Active Substance: LETROZOLE
     Route: 065
  14. LETROZOLE [Suspect]
     Active Substance: LETROZOLE
     Route: 065
  15. LETROZOLE [Suspect]
     Active Substance: LETROZOLE
     Route: 065
  16. LETROZOLE [Suspect]
     Active Substance: LETROZOLE
     Route: 065
  17. LETROZOLE [Suspect]
     Active Substance: LETROZOLE
     Route: 065

REACTIONS (2)
  - Pulmonary oedema [Recovered/Resolved]
  - Dyspnoea [Unknown]
